FAERS Safety Report 6140707-1 (Version None)
Quarter: 2009Q2

REPORT INFORMATION
  Report Type: 
  Country: None (occurrence: None)
  Receive Date: 20090402
  Receipt Date: 20090324
  Transmission Date: 20091009
  Serious: Yes (Hospitalization, Disabling)
  Sender: FDA-Public Use
  Company Number: GB-BIOGENIDEC-2008BI020706

PATIENT
  Age: 29 Year
  Sex: Female

DRUGS (3)
  1. AVONEX [Suspect]
     Indication: MULTIPLE SCLEROSIS
     Route: 030
     Dates: start: 20080807, end: 20080101
  2. PREGABALIN [Concomitant]
  3. CITALOPRAM HYDROBROMIDE [Concomitant]

REACTIONS (5)
  - ASTHENIA [None]
  - DRUG INTOLERANCE [None]
  - HYPOAESTHESIA [None]
  - PARALYSIS [None]
  - RELAPSING-REMITTING MULTIPLE SCLEROSIS [None]
